FAERS Safety Report 8214426-1 (Version None)
Quarter: 2012Q1

REPORT INFORMATION
  Report Type: 
  Country: None (occurrence: None)
  Receive Date: 20120316
  Receipt Date: 20120312
  Transmission Date: 20120608
  Serious: No
  Sender: FDA-Public Use
  Company Number: US-PFIZER INC-2012030828

PATIENT
  Sex: Female
  Weight: 104.31 kg

DRUGS (5)
  1. FLECTOR [Suspect]
     Indication: PAIN
  2. METHOTREXATE [Concomitant]
     Dosage: UNK
  3. HUMIRA [Concomitant]
     Dosage: UNK
  4. FLECTOR [Suspect]
     Indication: ARTHRALGIA
     Dosage: UNK
     Route: 061
     Dates: start: 20120201
  5. PREDNISONE [Concomitant]
     Dosage: UNK

REACTIONS (1)
  - DRUG INEFFECTIVE [None]
